FAERS Safety Report 6917726-8 (Version None)
Quarter: 2010Q3

REPORT INFORMATION
  Report Type: 
  Country: None (occurrence: None)
  Receive Date: 20100810
  Receipt Date: 20100623
  Transmission Date: 20110219
  Serious: Yes (Death, Life-Threatening)
  Sender: FDA-Public Use
  Company Number: FR-CEPHALON-2009010326

PATIENT
  Sex: Female

DRUGS (1)
  1. EFFENTORA [Suspect]
     Indication: CANCER PAIN
     Route: 002
     Dates: start: 20090822, end: 20090908

REACTIONS (4)
  - BRAIN NEOPLASM [None]
  - BRAIN OEDEMA [None]
  - CONVULSION [None]
  - DEATH [None]
